FAERS Safety Report 20903617 (Version 1)
Quarter: 2022Q2

REPORT INFORMATION
  Report Type: Spontaneous
  Country: ES (occurrence: ES)
  Receive Date: 20220602
  Receipt Date: 20220602
  Transmission Date: 20220721
  Serious: Yes (Other)
  Sender: FDA-Public Use
  Company Number: None

PATIENT
  Age: 53 Year
  Sex: Male
  Weight: 80 kg

DRUGS (4)
  1. RESLIZUMAB [Suspect]
     Active Substance: RESLIZUMAB
     Indication: Asthma
     Dosage: UNIT DOSE : 225 MG, FREQUENCY TIME : 1 MONTHS, THERAPY DURATION : 113  DAYS
     Route: 041
     Dates: start: 20211020, end: 20220209
  2. SPIRIVA [Concomitant]
     Active Substance: TIOTROPIUM BROMIDE MONOHYDRATE
     Indication: Asthma
     Dosage: 1 INHALER + 30 CAPSULES, STRENGTH : 18 MICROGRAM
     Route: 055
     Dates: start: 202005
  3. TEROMOL RETARD [Concomitant]
     Indication: Asthma
     Dosage: 40 TABLETS
     Route: 048
     Dates: start: 201801
  4. FOSTER [Concomitant]
     Active Substance: BECLOMETHASONE\FORMOTEROL
     Indication: Asthma
     Dosage: 100/6 MICROGRAMS/PULSE, 1 INHALER OF 120 DOSES
     Route: 055
     Dates: start: 202005

REACTIONS (1)
  - Urticaria [Recovered/Resolved]

NARRATIVE: CASE EVENT DATE: 20211020
